FAERS Safety Report 15011171 (Version 1)
Quarter: 2018Q2

REPORT INFORMATION
  Report Type: Spontaneous
  Country: PR (occurrence: PR)
  Receive Date: 20180529
  Receipt Date: 20180529
  Transmission Date: 20180711
  Serious: No
  Sender: FDA-Public Use
  Company Number: None

PATIENT
  Age: 80 Year
  Sex: Female
  Weight: 81 kg

DRUGS (1)
  1. VANCOMYCIN [Suspect]
     Active Substance: VANCOMYCIN
     Indication: DECUBITUS ULCER
     Route: 042
     Dates: start: 20180526, end: 20180527

REACTIONS (2)
  - Pruritus [None]
  - Discomfort [None]

NARRATIVE: CASE EVENT DATE: 20180527
